FAERS Safety Report 10189747 (Version 1)
Quarter: 2014Q2

REPORT INFORMATION
  Report Type: Spontaneous
  Country: US (occurrence: US)
  Receive Date: 20140522
  Receipt Date: 20140522
  Transmission Date: 20141212
  Serious: Yes (Other)
  Sender: FDA-Public Use
  Company Number: US-SA-2013SA108423

PATIENT
  Sex: 0

DRUGS (1)
  1. LANTUS [Suspect]
     Route: 051

REACTIONS (7)
  - Oedema peripheral [Unknown]
  - Pain in extremity [Unknown]
  - Hypersensitivity [Unknown]
  - Dyspnoea [Unknown]
  - Drug ineffective [Unknown]
  - Weight decreased [Unknown]
  - Back disorder [Not Recovered/Not Resolved]
